FAERS Safety Report 26127746 (Version 1)
Quarter: 2025Q4

REPORT INFORMATION
  Report Type: Spontaneous
  Country: US (occurrence: US)
  Receive Date: 20251206
  Receipt Date: 20251206
  Transmission Date: 20260118
  Serious: No
  Sender: SANOFI AVENTIS
  Company Number: US-SANOFI-02739339

PATIENT
  Age: 75 Year
  Sex: Female

DRUGS (3)
  1. LANTUS [Suspect]
     Active Substance: INSULIN GLARGINE
     Indication: Type 2 diabetes mellitus
     Dosage: AT LEAST UNITS 20 UNITS QD
     Dates: start: 20250101, end: 2025
  2. LANTUS [Suspect]
     Active Substance: INSULIN GLARGINE
     Dosage: 9 U, BID
     Dates: start: 2025, end: 2025
  3. LANTUS [Suspect]
     Active Substance: INSULIN GLARGINE
     Dosage: AT LEAST UNITS 20 UNITS QD

REACTIONS (2)
  - Blood glucose increased [Unknown]
  - Off label use [Unknown]

NARRATIVE: CASE EVENT DATE: 20250101
